FAERS Safety Report 14484797 (Version 1)
Quarter: 2018Q1

REPORT INFORMATION
  Report Type: Report from Study
  Country: None (occurrence: US)
  Receive Date: 20180205
  Receipt Date: 20180205
  Transmission Date: 20180509
  Serious: Yes (Hospitalization, Other)
  Sender: FDA-Public Use
  Company Number: US-ABBVIE-18K-163-2242835-00

PATIENT
  Age: 60 Year
  Sex: Male
  Weight: 63.56 kg

DRUGS (6)
  1. BENAZEPRIL [Concomitant]
     Active Substance: BENAZEPRIL HYDROCHLORIDE
     Indication: PRODUCT USED FOR UNKNOWN INDICATION
  2. HUMIRA [Suspect]
     Active Substance: ADALIMUMAB
     Indication: PSORIATIC ARTHROPATHY
     Route: 058
     Dates: start: 2014, end: 2014
  3. GABAPENTIN. [Concomitant]
     Active Substance: GABAPENTIN
     Indication: PRODUCT USED FOR UNKNOWN INDICATION
  4. HUMIRA [Suspect]
     Active Substance: ADALIMUMAB
     Route: 058
     Dates: start: 2014, end: 20171229
  5. HYDROCODONE [Concomitant]
     Active Substance: HYDROCODONE
     Indication: PRODUCT USED FOR UNKNOWN INDICATION
  6. METHOTREXATE. [Concomitant]
     Active Substance: METHOTREXATE
     Indication: PRODUCT USED FOR UNKNOWN INDICATION

REACTIONS (27)
  - Spinal osteoarthritis [Not Recovered/Not Resolved]
  - Asthenia [Recovered/Resolved]
  - Joint swelling [Unknown]
  - Peripheral swelling [Unknown]
  - Amnesia [Not Recovered/Not Resolved]
  - Gait disturbance [Unknown]
  - Fall [Recovered/Resolved]
  - Herpes zoster [Recovered/Resolved]
  - Gait inability [Recovered/Resolved]
  - Dizziness [Recovered/Resolved]
  - Multiple injuries [Recovered/Resolved]
  - Post procedural complication [Not Recovered/Not Resolved]
  - Nerve root compression [Recovered/Resolved]
  - Balance disorder [Not Recovered/Not Resolved]
  - Loss of consciousness [Recovered/Resolved]
  - Hypoaesthesia [Not Recovered/Not Resolved]
  - Arthralgia [Unknown]
  - Stress [Not Recovered/Not Resolved]
  - Scar [Not Recovered/Not Resolved]
  - Joint injury [Unknown]
  - Pain in extremity [Unknown]
  - Head injury [Unknown]
  - Loss of personal independence in daily activities [Not Recovered/Not Resolved]
  - Acne [Unknown]
  - Hand fracture [Unknown]
  - Muscular weakness [Not Recovered/Not Resolved]
  - Psoriatic arthropathy [Not Recovered/Not Resolved]

NARRATIVE: CASE EVENT DATE: 2014
